FAERS Safety Report 6469895-4 (Version None)
Quarter: 2009Q4

REPORT INFORMATION
  Report Type: 
  Country: None (occurrence: None)
  Receive Date: 20091203
  Receipt Date: 20071023
  Transmission Date: 20100525
  Serious: Yes (Hospitalization)
  Sender: FDA-Public Use
  Company Number: US-ELI_LILLY_AND_COMPANY-US200710007564

PATIENT
  Sex: Female

DRUGS (5)
  1. EXENATIDE [Suspect]
     Indication: TYPE 2 DIABETES MELLITUS
     Dosage: 5 UG, 2/D
     Route: 058
     Dates: start: 20060101, end: 20060101
  2. EXENATIDE [Suspect]
     Dosage: 10 UG, 2/D
     Route: 058
     Dates: start: 20060101
  3. EXENATIDE [Suspect]
     Dosage: 10 UG, DAILY (1/D)
     Dates: start: 20070501
  4. GLUCOPHAGE [Concomitant]
     Dosage: 2000 MG, DAILY (1/D)
     Route: 048
  5. GLUCOPHAGE [Concomitant]
     Dosage: 1000 MG, DAILY (1/D)
     Route: 048
     Dates: start: 20070901

REACTIONS (6)
  - DIARRHOEA [None]
  - FOOD POISONING [None]
  - GASTROINTESTINAL ULCER HAEMORRHAGE [None]
  - HAEMATEMESIS [None]
  - VOMITING [None]
  - WEIGHT DECREASED [None]
